FAERS Safety Report 7616809-7 (Version None)
Quarter: 2011Q3

REPORT INFORMATION
  Report Type: 
  Country: None (occurrence: None)
  Receive Date: 20110718
  Receipt Date: 20110705
  Transmission Date: 20111222
  Serious: No
  Sender: FDA-Public Use
  Company Number: US-BIOGENIDEC-2010BI029246

PATIENT
  Age: 57 Year
  Sex: Female

DRUGS (5)
  1. TYSABRI [Suspect]
     Route: 042
     Dates: start: 20110501
  2. CYMBALTA [Concomitant]
     Indication: ANTIDEPRESSANT THERAPY
     Dates: start: 20110401
  3. WELLBUTRIN [Concomitant]
     Indication: ANTIDEPRESSANT THERAPY
     Dates: end: 20110401
  4. TYSABRI [Suspect]
     Route: 042
     Dates: start: 20100701, end: 20110201
  5. TYSABRI [Suspect]
     Indication: MULTIPLE SCLEROSIS
     Route: 042
     Dates: start: 20100114, end: 20100601

REACTIONS (14)
  - POSTURE ABNORMAL [None]
  - WHEEZING [None]
  - FLUSHING [None]
  - ARTHRALGIA [None]
  - HEADACHE [None]
  - INCREASED UPPER AIRWAY SECRETION [None]
  - ASTHENIA [None]
  - PAIN IN EXTREMITY [None]
  - DYSPNOEA [None]
  - BLOOD PRESSURE INCREASED [None]
  - INCREASED TENDENCY TO BRUISE [None]
  - PAIN [None]
  - EYE PAIN [None]
  - FATIGUE [None]
